FAERS Safety Report 10233130 (Version 1)
Quarter: 2014Q2

REPORT INFORMATION
  Report Type: Spontaneous
  Country: US (occurrence: None)
  Receive Date: 20140611
  Receipt Date: 20140611
  Transmission Date: 20141212
  Serious: Yes (Hospitalization)
  Sender: FDA-Public Use
  Company Number: None

PATIENT
  Age: 61 Year
  Sex: Male
  Weight: 84.3 kg

DRUGS (2)
  1. 5-FLUOROURACIL (5-FU) [Suspect]
  2. OXALIPLATIN (ELOXATIN) [Suspect]

REACTIONS (9)
  - Nausea [None]
  - Vomiting [None]
  - Dysgeusia [None]
  - Dysphagia [None]
  - Cholelithiasis [None]
  - Ejection fraction decreased [None]
  - Candida infection [None]
  - Pleural effusion [None]
  - Eating disorder [None]
